FAERS Safety Report 10383874 (Version 2)
Quarter: 2014Q3

REPORT INFORMATION
  Report Type: Report from Study
  Country: CA (occurrence: CA)
  Receive Date: 20140814
  Receipt Date: 20140814
  Transmission Date: 20150326
  Serious: Yes (Other)
  Sender: FDA-Public Use
  Company Number: CA-JNJFOC-20131008030

PATIENT
  Sex: Female
  Weight: 82.6 kg

DRUGS (1)
  1. REMICADE [Suspect]
     Active Substance: INFLIXIMAB
     Indication: CROHN^S DISEASE
     Dosage: 52 WEEKS
     Route: 042
     Dates: start: 20130826, end: 201310

REACTIONS (10)
  - Dyspnoea [Unknown]
  - Nausea [Unknown]
  - Chest discomfort [Unknown]
  - Lupus-like syndrome [Unknown]
  - Pruritus [Unknown]
  - Diarrhoea [Unknown]
  - Unevaluable event [Unknown]
  - Infusion related reaction [Unknown]
  - Abdominal distension [Unknown]
  - Rash [Unknown]

NARRATIVE: CASE EVENT DATE: 2013
